FAERS Safety Report 25317551 (Version 1)
Quarter: 2025Q2

REPORT INFORMATION
  Report Type: Spontaneous
  Country: CN (occurrence: CN)
  Receive Date: 20250515
  Receipt Date: 20250515
  Transmission Date: 20250717
  Serious: Yes (Other)
  Sender: ALKEM
  Company Number: CN-ALKEM LABORATORIES LIMITED-CN-ALKEM-2024-15177

PATIENT
  Age: 13 Month

DRUGS (6)
  1. AZATHIOPRINE [Suspect]
     Active Substance: AZATHIOPRINE
     Indication: Hepatitis
     Route: 065
  2. AZATHIOPRINE [Suspect]
     Active Substance: AZATHIOPRINE
     Indication: Autoimmune haemolytic anaemia
  3. PREDNISONE [Suspect]
     Active Substance: PREDNISONE
     Indication: Hepatitis
     Dosage: 2-3 MILLIGRAM/KILOGRAM, QD
     Route: 065
  4. PREDNISONE [Suspect]
     Active Substance: PREDNISONE
     Indication: Autoimmune haemolytic anaemia
  5. RITUXIMAB [Suspect]
     Active Substance: RITUXIMAB
     Indication: Hepatitis
     Route: 065
  6. RITUXIMAB [Suspect]
     Active Substance: RITUXIMAB
     Indication: Autoimmune haemolytic anaemia

REACTIONS (5)
  - Pneumonia [Unknown]
  - Hepatitis [Recovered/Resolved]
  - Disease recurrence [Recovered/Resolved]
  - Blood immunoglobulin M decreased [Unknown]
  - Therapy partial responder [Unknown]
